FAERS Safety Report 7549889-8 (Version None)
Quarter: 2011Q2

REPORT INFORMATION
  Report Type: 
  Country: None (occurrence: None)
  Receive Date: 20110615
  Receipt Date: 20110610
  Transmission Date: 20111010
  Serious: Yes (Hospitalization)
  Sender: FDA-Public Use
  Company Number: CA-ABBOTT-11P-028-0729640-00

PATIENT
  Sex: Female
  Weight: 81.266 kg

DRUGS (10)
  1. NEXIUM [Concomitant]
     Indication: GASTROOESOPHAGEAL REFLUX DISEASE
  2. ESTRADERM [Concomitant]
     Indication: BLOOD OESTROGEN
     Route: 061
  3. HUMIRA [Suspect]
     Indication: CROHN'S DISEASE
     Dates: start: 20081223
  4. HUMIRA [Suspect]
     Dates: end: 20110524
  5. OXAZEPAM [Concomitant]
     Indication: INSOMNIA
     Route: 048
  6. IMITREX [Concomitant]
     Indication: MIGRAINE
     Dates: start: 20010101
  7. HUMIRA [Suspect]
     Dates: start: 20090101
  8. VITAMIN B-12 [Concomitant]
     Indication: VITAMIN B12 DEFICIENCY
     Dosage: BI-WEEKLY
     Route: 058
  9. ALBUTEROL [Concomitant]
     Indication: BRONCHITIS
  10. MULTIVITAMIN GUMMI [Concomitant]
     Indication: PRODUCT USED FOR UNKNOWN INDICATION
     Route: 048

REACTIONS (3)
  - SMALL INTESTINAL OBSTRUCTION [None]
  - DRUG INEFFECTIVE [None]
  - CROHN'S DISEASE [None]
